FAERS Safety Report 7964748-4 (Version None)
Quarter: 2011Q4

REPORT INFORMATION
  Report Type: 
  Country: None (occurrence: None)
  Receive Date: 20111208
  Receipt Date: 20111201
  Transmission Date: 20120403
  Serious: Yes (Other)
  Sender: FDA-Public Use
  Company Number: US-US-EMD SERONO, INC.-7001295

PATIENT
  Sex: Female
  Weight: 62 kg

DRUGS (10)
  1. CALCIUM [Concomitant]
  2. GNC WOMEN'S HAIR, SKIN AND NAIL PROGRAM [Concomitant]
  3. REBIF [Suspect]
     Indication: MULTIPLE SCLEROSIS
     Route: 058
     Dates: start: 20020101
  4. ASPIRIN [Concomitant]
  5. MAGNESIUM SULFATE [Concomitant]
  6. LOVAZA [Concomitant]
     Indication: BLOOD CHOLESTEROL ABNORMAL
     Route: 048
     Dates: start: 20080101
  7. NIASPAN [Concomitant]
     Indication: BLOOD CHOLESTEROL ABNORMAL
     Route: 048
     Dates: start: 20090101
  8. VOLTAREN [Concomitant]
  9. ENABLEX [Concomitant]
     Indication: BLADDER DISORDER
     Route: 048
  10. VITAMIN TAB [Concomitant]
     Indication: VITAMIN SUPPLEMENTATION

REACTIONS (11)
  - FUCHS' SYNDROME [None]
  - DYSPEPSIA [None]
  - SURGERY [None]
  - NEUROPATHY PERIPHERAL [None]
  - ALOPECIA [None]
  - TRIGEMINAL NEURALGIA [None]
  - ANAEMIA [None]
  - INJECTION SITE NECROSIS [None]
  - OPTIC NEURITIS [None]
  - INFLUENZA LIKE ILLNESS [None]
  - PYREXIA [None]
